FAERS Safety Report 9677974 (Version 1)
Quarter: 2013Q4

REPORT INFORMATION
  Report Type: Spontaneous
  Country: US (occurrence: US)
  Receive Date: 20131108
  Receipt Date: 20131108
  Transmission Date: 20140711
  Serious: No
  Sender: FDA-Public Use
  Company Number: US-BAYER-2013-133831

PATIENT
  Sex: 0

DRUGS (4)
  1. ALEVE CAPLET [Suspect]
     Indication: TOOTHACHE
  2. TYLENOL [PARACETAMOL] [Suspect]
     Indication: TOOTHACHE
  3. ANBESOL [BENZOCAINE] [Suspect]
     Indication: TOOTHACHE
  4. NYQUIL [Suspect]
     Indication: TOOTHACHE

REACTIONS (1)
  - Euphoric mood [None]
